FAERS Safety Report 21287822 (Version 1)
Quarter: 2022Q3

REPORT INFORMATION
  Report Type: Spontaneous
  Country: US (occurrence: US)
  Receive Date: 20220902
  Receipt Date: 20220902
  Transmission Date: 20221026
  Serious: No
  Sender: FDA-Public Use
  Company Number: US-ABBVIE-22K-163-4518070-00

PATIENT

DRUGS (1)
  1. SKYRIZI [Interacting]
     Active Substance: RISANKIZUMAB-RZAA
     Indication: Psoriasis
     Route: 058

REACTIONS (4)
  - Drug interaction [Unknown]
  - Bursitis [Unknown]
  - Headache [Recovered/Resolved]
  - Myalgia [Recovered/Resolved]
